FAERS Safety Report 4278300-8 (Version None)
Quarter: 2004Q1

REPORT INFORMATION
  Report Type: 
  Country: None (occurrence: None)
  Receive Date: 20040121
  Receipt Date: 20040121
  Transmission Date: 20041129
  Serious: Yes (Other)
  Sender: FDA-Public Use
  Company Number: None

PATIENT
  Sex: Female
  Weight: 65.318 kg

DRUGS (2)
  1. GENERIC SERZONE [Suspect]
     Indication: DEPRESSION
     Dosage: 100 MG QD
     Dates: start: 20031001, end: 20031101
  2. GENERIC SERZONE [Suspect]
     Indication: PANIC ATTACK
     Dosage: 100 MG QD
     Dates: start: 20031001, end: 20031101

REACTIONS (3)
  - DIZZINESS [None]
  - NAUSEA [None]
  - PHARMACEUTICAL PRODUCT COMPLAINT [None]
